FAERS Safety Report 11745319 (Version 1)
Quarter: 2015Q4

REPORT INFORMATION
  Report Type: Spontaneous
  Country: US (occurrence: US)
  Receive Date: 20151117
  Receipt Date: 20151117
  Transmission Date: 20160304
  Serious: Yes (Hospitalization, Other)
  Sender: FDA-Public Use
  Company Number: US-ROCHE-1659996

PATIENT
  Age: 51 Year
  Sex: Female

DRUGS (1)
  1. RITUXAN [Suspect]
     Active Substance: RITUXIMAB
     Indication: NON-HODGKIN^S LYMPHOMA
     Dosage: THERAPY START DATE: APR/2013 OR MAY/2013.
     Route: 042
     Dates: end: 201306

REACTIONS (10)
  - Inflammation [Not Recovered/Not Resolved]
  - Infection [Unknown]
  - Pleural effusion [Not Recovered/Not Resolved]
  - Gastrooesophageal reflux disease [Unknown]
  - Pleurisy [Unknown]
  - Autoimmune disorder [Not Recovered/Not Resolved]
  - Viral infection [Not Recovered/Not Resolved]
  - Psychomotor hyperactivity [Recovered/Resolved]
  - Drug ineffective [Unknown]
  - Pericardial effusion [Not Recovered/Not Resolved]

NARRATIVE: CASE EVENT DATE: 2013
